FAERS Safety Report 8268102-X (Version None)
Quarter: 2012Q2

REPORT INFORMATION
  Report Type: 
  Country: None (occurrence: None)
  Receive Date: 20120409
  Receipt Date: 20120326
  Transmission Date: 20120825
  Serious: Yes (Other)
  Sender: FDA-Public Use
  Company Number: FR-ELI_LILLY_AND_COMPANY-FR201204000193

PATIENT
  Age: 67 Year
  Sex: Male

DRUGS (5)
  1. CIALIS [Suspect]
     Dosage: 20 MG, UNK
     Route: 048
     Dates: start: 20120106
  2. ASPIRIN [Concomitant]
  3. XENETIX [Concomitant]
     Indication: NUCLEAR MAGNETIC RESONANCE IMAGING
     Dosage: UNK
  4. COZAAR [Concomitant]
  5. JANUVIA [Concomitant]

REACTIONS (1)
  - VISUAL IMPAIRMENT [None]
